FAERS Safety Report 10468235 (Version 1)
Quarter: 2014Q3

REPORT INFORMATION
  Report Type: Spontaneous
  Country: US (occurrence: US)
  Receive Date: 20140922
  Receipt Date: 20140922
  Transmission Date: 20150326
  Serious: No
  Sender: FDA-Public Use
  Company Number: US-GILEAD-2014-0115714

PATIENT
  Age: 41 Year
  Sex: Female

DRUGS (10)
  1. ORENITRAM [Suspect]
     Active Substance: TREPROSTINIL
  2. XARELTO [Concomitant]
     Active Substance: RIVAROXABAN
  3. ZOFRAN                             /00955301/ [Concomitant]
     Active Substance: ONDANSETRON HYDROCHLORIDE
  4. DIGOXIN. [Concomitant]
     Active Substance: DIGOXIN
  5. TOPAMAX [Concomitant]
     Active Substance: TOPIRAMATE
  6. FUROSEMIDE. [Concomitant]
     Active Substance: FUROSEMIDE
  7. LETAIRIS [Suspect]
     Active Substance: AMBRISENTAN
     Indication: PULMONARY HYPERTENSION
     Dosage: 10 MG, QD
     Route: 065
     Dates: start: 20110502
  8. DIFLUCAN [Concomitant]
     Active Substance: FLUCONAZOLE
  9. GABAPENTIN. [Concomitant]
     Active Substance: GABAPENTIN
  10. PROCHLORPERAZINE. [Concomitant]
     Active Substance: PROCHLORPERAZINE

REACTIONS (2)
  - Diarrhoea [Unknown]
  - Vomiting [Unknown]
